FAERS Safety Report 21628783 (Version 1)
Quarter: 2022Q4

REPORT INFORMATION
  Report Type: Spontaneous
  Country: US (occurrence: US)
  Receive Date: 20221122
  Receipt Date: 20221122
  Transmission Date: 20230112
  Serious: Yes (Hospitalization)
  Sender: FDA-Public Use
  Company Number: US-SAMOHPHARM-2022004397

PATIENT

DRUGS (5)
  1. CARBAGLU [Suspect]
     Active Substance: CARGLUMIC ACID
     Indication: Hyperglycinaemia
     Dosage: 200 MILLIGRAM, BID
     Dates: start: 2022, end: 202209
  2. CARBAGLU [Suspect]
     Active Substance: CARGLUMIC ACID
     Dosage: 200 MILLIGRAM, TID
     Dates: start: 202209, end: 202209
  3. CARBAGLU [Suspect]
     Active Substance: CARGLUMIC ACID
     Dosage: 150 MILLIGRAM/KG/DAY BID
     Dates: start: 202209, end: 202209
  4. CARBAGLU [Suspect]
     Active Substance: CARGLUMIC ACID
     Dosage: 50 MILLIGRAM/KG/DAY
     Dates: start: 202209, end: 202209
  5. CARBAGLU [Suspect]
     Active Substance: CARGLUMIC ACID
     Dosage: 100 MILLIGRAM/KG/DAY, BID
     Dates: start: 202209

REACTIONS (3)
  - Hypophagia [Unknown]
  - Hyperammonaemia [Unknown]
  - Vomiting [Unknown]

NARRATIVE: CASE EVENT DATE: 20220901
